FAERS Safety Report 6195299-8 (Version None)
Quarter: 2009Q2

REPORT INFORMATION
  Report Type: 
  Country: None (occurrence: None)
  Receive Date: 20090519
  Receipt Date: 20090512
  Transmission Date: 20091009
  Serious: Yes (Other)
  Sender: FDA-Public Use
  Company Number: US-ELI_LILLY_AND_COMPANY-US200905002710

PATIENT
  Sex: Male

DRUGS (2)
  1. HUMALOG [Suspect]
  2. HUMALOG [Suspect]

REACTIONS (4)
  - CATARACT [None]
  - HYPOGLYCAEMIC UNCONSCIOUSNESS [None]
  - INTERCEPTED DRUG DISPENSING ERROR [None]
  - VISUAL ACUITY REDUCED [None]
